FAERS Safety Report 8578826-2 (Version None)
Quarter: 2012Q3

REPORT INFORMATION
  Report Type: 
  Country: None (occurrence: None)
  Receive Date: 20120808
  Receipt Date: 20120730
  Transmission Date: 20120928
  Serious: Yes (Other)
  Sender: FDA-Public Use
  Company Number: IE-AMGEN-IRLSP2012040592

PATIENT
  Age: 38 Year
  Sex: Female

DRUGS (4)
  1. DIFENE [Concomitant]
     Indication: PAIN
     Dosage: 75 MG, UNK
     Route: 048
  2. DIFENE [Concomitant]
     Indication: MUSCULOSKELETAL STIFFNESS
  3. ACETAMINOPHEN AND TRAMADOL HCL [Concomitant]
     Indication: PAIN
     Dosage: UNK
     Route: 048
  4. ENBREL [Suspect]
     Indication: ANKYLOSING SPONDYLITIS
     Dosage: 50 MG, WEEKLY
     Dates: start: 20110701, end: 20120503

REACTIONS (4)
  - SENSORY DISTURBANCE [None]
  - MULTIPLE SCLEROSIS [None]
  - NEUROLOGICAL SYMPTOM [None]
  - DEMYELINATION [None]
